FAERS Safety Report 5077904-2 (Version None)
Quarter: 2006Q3

REPORT INFORMATION
  Report Type: 
  Country: None (occurrence: None)
  Receive Date: 20060725
  Receipt Date: 20060404
  Transmission Date: 20061208
  Serious: No
  Sender: FDA-Public Use
  Company Number: 06-000311

PATIENT
  Age: 63 Year
  Sex: Female

DRUGS (4)
  1. FEMHRT [Suspect]
     Indication: MENOPAUSAL SYMPTOMS
     Dosage: 5/1000 UG
     Dates: start: 19820101
  2. PREMARIN [Suspect]
     Indication: MENOPAUSAL SYMPTOMS
     Dates: start: 19820101
  3. PROVERA [Suspect]
     Indication: MENOPAUSAL SYMPTOMS
     Dates: start: 19820101
  4. PREMPRO [Suspect]
     Indication: MENOPAUSAL SYMPTOMS
     Dates: start: 19820101

REACTIONS (1)
  - BREAST CANCER IN SITU [None]
